FAERS Safety Report 7967705-7 (Version None)
Quarter: 2011Q4

REPORT INFORMATION
  Report Type: 
  Country: None (occurrence: None)
  Receive Date: 20111209
  Receipt Date: 20110119
  Transmission Date: 20120403
  Serious: Yes (Hospitalization)
  Sender: FDA-Public Use
  Company Number: US-B.I. PHARMACEUTICALS,INC./RIDGEFIELD-2011-BP-01230BP

PATIENT
  Sex: Female

DRUGS (3)
  1. SPIRIVA [Suspect]
     Indication: CHRONIC OBSTRUCTIVE PULMONARY DISEASE
     Dosage: 18 MCG
     Route: 055
     Dates: start: 20100101
  2. TRUSOPT [Concomitant]
     Indication: GLAUCOMA
  3. XALATAN [Concomitant]
     Indication: GLAUCOMA

REACTIONS (5)
  - HYPOTENSION [None]
  - DIZZINESS [None]
  - DEHYDRATION [None]
  - WEIGHT DECREASED [None]
  - BLOOD CHOLESTEROL INCREASED [None]
